FAERS Safety Report 9725927 (Version 3)
Quarter: 2014Q2

REPORT INFORMATION
  Report Type: Spontaneous
  Country: US (occurrence: US)
  Receive Date: 20131203
  Receipt Date: 20140625
  Transmission Date: 20141212
  Serious: Yes (Other)
  Sender: FDA-Public Use
  Company Number: US-BAYER-2013-142287

PATIENT
  Age: 29 Year
  Sex: Female

DRUGS (6)
  1. MIRENA [Suspect]
     Indication: CONTRACEPTION
     Dosage: 20 MCG/24HR, CONT
     Route: 015
     Dates: start: 20100301, end: 20100913
  2. ADVAIR [Concomitant]
     Indication: ASTHMA
     Dosage: UNK
     Dates: start: 2006
  3. ALBUTEROL [Concomitant]
  4. FOLIC ACID [Concomitant]
  5. SELECT [Concomitant]
  6. METOCLOPRAMIDE [Concomitant]

REACTIONS (10)
  - Uterine perforation [None]
  - Pain [None]
  - Injury [None]
  - Emotional distress [None]
  - Medical device complication [None]
  - Dyspareunia [None]
  - Vaginal infection [None]
  - Anxiety [None]
  - Depression [None]
  - Loss of libido [None]
